FAERS Safety Report 23171609 (Version 2)
Quarter: 2023Q4

REPORT INFORMATION
  Report Type: Spontaneous
  Country: BR (occurrence: BR)
  Receive Date: 20231110
  Receipt Date: 20231116
  Transmission Date: 20240109
  Serious: Yes (Disabling, Other)
  Sender: FDA-Public Use
  Company Number: BR-GILEAD-2023-0650654

PATIENT
  Sex: Female

DRUGS (2)
  1. TRODELVY [Suspect]
     Active Substance: SACITUZUMAB GOVITECAN-HZIY
     Indication: Product used for unknown indication
     Dosage: CYCLE 4 AT TIME OF ADVERSE EVENT
     Route: 065
  2. LUMINAL [FLUOXETINE HYDROCHLORIDE] [Concomitant]

REACTIONS (1)
  - Erysipelas [Unknown]

NARRATIVE: CASE EVENT DATE: 20231109
